FAERS Safety Report 22763055 (Version 2)
Quarter: 2023Q4

REPORT INFORMATION
  Report Type: Report from Study
  Country: US (occurrence: US)
  Receive Date: 20230729
  Receipt Date: 20231102
  Transmission Date: 20240109
  Serious: No
  Sender: FDA-Public Use
  Company Number: US-002147023-NVSC2023US165361

PATIENT
  Sex: Male

DRUGS (2)
  1. ENTRESTO [Suspect]
     Active Substance: SACUBITRIL\VALSARTAN
     Indication: Product used for unknown indication
     Dosage: 0.5 DOSAGE FORM, BID (1/2 TAB)
     Route: 065
     Dates: start: 202304
  2. ENTRESTO [Suspect]
     Active Substance: SACUBITRIL\VALSARTAN
     Dosage: UNK
     Route: 065
     Dates: start: 202304

REACTIONS (4)
  - Blood disorder [Recovering/Resolving]
  - Wrong technique in product usage process [Recovering/Resolving]
  - Asthenia [Not Recovered/Not Resolved]
  - Hypotension [Unknown]
